FAERS Safety Report 7156603-7 (Version None)
Quarter: 2010Q4

REPORT INFORMATION
  Report Type: 
  Country: None (occurrence: None)
  Receive Date: 20101214
  Receipt Date: 20091102
  Transmission Date: 20110411
  Serious: No
  Sender: FDA-Public Use
  Company Number: US-ASTRAZENECA-2009SE24070

PATIENT
  Age: 70 Year
  Sex: Female
  Weight: 59.9 kg

DRUGS (1)
  1. CRESTOR [Suspect]
     Route: 048
     Dates: start: 20091021

REACTIONS (3)
  - HEADACHE [None]
  - MYALGIA [None]
  - PARAESTHESIA [None]
